FAERS Safety Report 9960178 (Version 2)
Quarter: 2014Q1

REPORT INFORMATION
  Report Type: Spontaneous
  Country: PR (occurrence: PR)
  Receive Date: 20140305
  Receipt Date: 20140305
  Transmission Date: 20141002
  Serious: No
  Sender: FDA-Public Use
  Company Number: PR-ABBVIE-13P-131-1091162-00

PATIENT
  Sex: Female
  Weight: 81.72 kg

DRUGS (9)
  1. HUMIRA [Suspect]
     Indication: RHEUMATOID ARTHRITIS
     Route: 058
     Dates: start: 2010
  2. HUMIRA [Suspect]
     Route: 058
     Dates: start: 20130521
  3. ASMANEX [Concomitant]
     Indication: SINUSITIS
     Dosage: 2 INHALATIONS EVERY NIGHT
     Route: 055
  4. METHOTREXATE [Concomitant]
     Indication: RHEUMATOID ARTHRITIS
     Dosage: 6 TABS WEEKLY
     Route: 048
  5. PLAQUENIL [Concomitant]
     Indication: RHEUMATOID ARTHRITIS
  6. NEURONTIN [Concomitant]
     Indication: NEUROPATHY PERIPHERAL
     Route: 048
  7. BUDEPROIN [Concomitant]
     Indication: MAJOR DEPRESSION
     Route: 048
  8. ELAVIL [Concomitant]
     Indication: MAJOR DEPRESSION
     Route: 048
  9. VALIUM [Concomitant]
     Indication: INSOMNIA
     Route: 048

REACTIONS (1)
  - Pharyngitis [Recovered/Resolved]
